FAERS Safety Report 5391294-7 (Version None)
Quarter: 2007Q3

REPORT INFORMATION
  Report Type: 
  Country: None (occurrence: None)
  Receive Date: 20070719
  Receipt Date: 20070712
  Transmission Date: 20080115
  Serious: Yes (Death)
  Sender: FDA-Public Use
  Company Number: A0628494A

PATIENT
  Age: 11 Year
  Sex: Male
  Weight: 33.2 kg

DRUGS (1)
  1. PAXIL [Suspect]
     Indication: ANXIETY
     Dosage: 10MG IN THE MORNING
     Route: 048
     Dates: start: 20030222, end: 20030301

REACTIONS (1)
  - COMPLETED SUICIDE [None]
